FAERS Safety Report 18189796 (Version 1)
Quarter: 2020Q3

REPORT INFORMATION
  Report Type: Spontaneous
  Country: FR (occurrence: FR)
  Receive Date: 20200825
  Receipt Date: 20200825
  Transmission Date: 20201103
  Serious: Yes (Hospitalization)
  Sender: FDA-Public Use
  Company Number: FR-ACCORD-196918

PATIENT
  Age: 65 Year
  Sex: Male
  Weight: 95 kg

DRUGS (14)
  1. DAPTOMYCIN. [Suspect]
     Active Substance: DAPTOMYCIN
     Indication: STAPHYLOCOCCAL INFECTION
     Dosage: EVERY 48 HOURS FROM 03/06/2020
     Route: 042
     Dates: start: 20200528, end: 20200621
  2. FUROSEMIDE. [Concomitant]
     Active Substance: FUROSEMIDE
     Indication: HYPERTENSION
     Route: 048
  3. ATROVENT [Concomitant]
     Active Substance: IPRATROPIUM BROMIDE
     Indication: CHRONIC OBSTRUCTIVE PULMONARY DISEASE
     Dosage: IN AEROSOL
     Route: 055
     Dates: start: 20200531
  4. SALBUTAMOL [Concomitant]
     Active Substance: ALBUTEROL
     Indication: CHRONIC OBSTRUCTIVE PULMONARY DISEASE
     Dosage: IN AEROSOL
     Route: 055
     Dates: start: 20200601
  5. RIFADINE [Suspect]
     Active Substance: RIFAMPIN
     Indication: STAPHYLOCOCCAL INFECTION
     Dosage: STRENGTH: 300 MG
     Route: 048
     Dates: start: 20200528, end: 20200621
  6. CALCIPARINE [Suspect]
     Active Substance: HEPARIN CALCIUM
     Indication: EMBOLISM VENOUS
     Dosage: STRENGTH: 5,000 IU / 0.2 ML
     Route: 058
     Dates: start: 20200517, end: 20200621
  7. DESLORATADINE. [Concomitant]
     Active Substance: DESLORATADINE
     Indication: HYPERSENSITIVITY
     Route: 048
     Dates: start: 20200608
  8. ACTOSOLV [Concomitant]
     Indication: ADMINISTRATION SITE THROMBOSIS
     Route: 042
     Dates: start: 20200621, end: 20200621
  9. PARACETAMOL [Concomitant]
     Active Substance: ACETAMINOPHEN
     Indication: PAIN
     Dosage: IF PAIN
     Route: 048
     Dates: start: 20200517
  10. LANSOPRAZOLE. [Concomitant]
     Active Substance: LANSOPRAZOLE
     Indication: GASTROOESOPHAGEAL REFLUX DISEASE
     Dosage: INSTEAD OF RABEPRAZOLE FOR THE DURATION OF HOSPITALIZATION
     Route: 048
     Dates: start: 20200517
  11. TRAMADOL. [Concomitant]
     Active Substance: TRAMADOL
     Indication: PAIN
     Dosage: IF PAIN NOT RELIEVED BY PARACETAMOL
     Route: 048
     Dates: start: 20200612
  12. KARDEGIC [Concomitant]
     Active Substance: ASPIRIN DL-LYSINE
     Indication: CEREBROVASCULAR ACCIDENT
     Route: 048
     Dates: start: 20200517
  13. CORDARONE [Concomitant]
     Active Substance: AMIODARONE HYDROCHLORIDE
     Indication: MYOCARDIAL ISCHAEMIA
     Dosage: STRENGTH: 200 MG
     Route: 048
     Dates: start: 20200525
  14. BISOCE [Concomitant]
     Active Substance: BISOPROLOL
     Indication: MYOCARDIAL ISCHAEMIA
     Dosage: STRENGTH: 2.5 MG
     Route: 048

REACTIONS (1)
  - Hypersensitivity vasculitis [Recovered/Resolved]

NARRATIVE: CASE EVENT DATE: 20200611
